FAERS Safety Report 9027110 (Version 1)
Quarter: 2013Q1

REPORT INFORMATION
  Report Type: Spontaneous
  Country: US (occurrence: US)
  Receive Date: 20130123
  Receipt Date: 20130123
  Transmission Date: 20140127
  Serious: No
  Sender: FDA-Public Use
  Company Number: US-TARO-2012P1011547

PATIENT
  Age: 93 Year
  Sex: Female

DRUGS (3)
  1. TRIAMCINOLONE ACETONIDE [Suspect]
     Indication: URTICARIA
     Route: 061
     Dates: start: 20120327, end: 20120327
  2. PREDNISONE [Concomitant]
  3. LOSARTAN/HCTZ [Concomitant]

REACTIONS (2)
  - Pruritus [Recovered/Resolved]
  - Drug ineffective [Unknown]
